FAERS Safety Report 5798902-7 (Version None)
Quarter: 2008Q2

REPORT INFORMATION
  Report Type: 
  Country: None (occurrence: None)
  Receive Date: 20080630
  Receipt Date: 20080618
  Transmission Date: 20081010
  Serious: Yes (Hospitalization, Other)
  Sender: FDA-Public Use
  Company Number: GXKR2008SE05662

PATIENT
  Age: 81 Year
  Sex: Male

DRUGS (10)
  1. CETIRIZINE HCL [Suspect]
     Dosage: 10 MG, QD, ORAL
     Route: 048
     Dates: start: 20080429, end: 20080430
  2. SIMVASTATIN [Concomitant]
  3. ACETAMINOPHEN [Concomitant]
  4. FUROSEMIDE [Concomitant]
  5. NORMORIX (AMILORIDE HYDROCHLORIDE, HYDROCHLOROTHIAZIDE) [Concomitant]
  6. ZOLADEX [Concomitant]
  7. ACETYLSALICYLIC ACID SRT [Concomitant]
  8. LEVOTHYROXINE SODIUM [Concomitant]
  9. ALLOPURINOL [Concomitant]
  10. ACETYLCYSTEINE [Concomitant]

REACTIONS (6)
  - ASTHENIA [None]
  - CHEST PAIN [None]
  - DYSKINESIA [None]
  - ELECTROCARDIOGRAM QT PROLONGED [None]
  - HYPOKALAEMIA [None]
  - SYNCOPE [None]
